FAERS Safety Report 10088917 (Version 1)
Quarter: 2014Q2

REPORT INFORMATION
  Report Type: Spontaneous
  Country: FR (occurrence: FR)
  Receive Date: 20140421
  Receipt Date: 20140421
  Transmission Date: 20141212
  Serious: Yes (Life-Threatening)
  Sender: FDA-Public Use
  Company Number: FR-JNJFOC-20140411330

PATIENT
  Age: 87 Year
  Sex: Female

DRUGS (3)
  1. XARELTO [Suspect]
     Indication: EMBOLISM VENOUS
     Route: 048
     Dates: end: 20140301
  2. XARELTO [Suspect]
     Indication: PULMONARY EMBOLISM
     Route: 048
     Dates: end: 20140301
  3. APRANAX [Suspect]
     Indication: ARTHRALGIA
     Route: 048
     Dates: start: 20140228, end: 20140301

REACTIONS (2)
  - Gastritis [Recovering/Resolving]
  - Gastric haemorrhage [Recovering/Resolving]
